FAERS Safety Report 5281375-0 (Version None)
Quarter: 2007Q1

REPORT INFORMATION
  Report Type: 
  Country: None (occurrence: None)
  Receive Date: 20070330
  Receipt Date: 20070320
  Transmission Date: 20070707
  Serious: Yes (Life-Threatening, Hospitalization)
  Sender: FDA-Public Use
  Company Number: JP-JNJFOC-20030706395

PATIENT
  Sex: Male
  Weight: 100 kg

DRUGS (10)
  1. RISPERIDONE [Suspect]
     Route: 048
  2. RISPERIDONE [Suspect]
     Route: 048
  3. RISPERIDONE [Suspect]
     Route: 048
  4. RISPERIDONE [Suspect]
     Route: 048
  5. RISPERIDONE [Suspect]
     Indication: SCHIZOPHRENIA
     Route: 048
  6. PEROSPIRONE HYDROCHLORIDE HYDRATE [Suspect]
     Indication: HALLUCINATION
     Route: 048
  7. BIPERIDEN HYDROCHLORIDE [Suspect]
     Route: 048
  8. BIPERIDEN HYDROCHLORIDE [Suspect]
     Indication: PARKINSONISM
     Route: 048
  9. LEVOMEPROMAZINE MALEATE [Suspect]
     Indication: INSOMNIA
     Route: 048
  10. FLUNITRAZEPAM [Suspect]
     Indication: INSOMNIA
     Route: 048

REACTIONS (8)
  - COMA [None]
  - DIABETIC KETOACIDOSIS [None]
  - HYPERKALAEMIA [None]
  - HYPOVOLAEMIC SHOCK [None]
  - PANCREATITIS ACUTE [None]
  - RENAL FAILURE ACUTE [None]
  - RHABDOMYOLYSIS [None]
  - WEIGHT INCREASED [None]
